FAERS Safety Report 8151007-2 (Version None)
Quarter: 2012Q1

REPORT INFORMATION
  Report Type: 
  Country: None (occurrence: None)
  Receive Date: 20120220
  Receipt Date: 20120210
  Transmission Date: 20120608
  Serious: Yes (Death, Hospitalization, Other)
  Sender: FDA-Public Use
  Company Number: BR-BRISTOL-MYERS SQUIBB COMPANY-16396681

PATIENT
  Age: 93 Year
  Sex: Female

DRUGS (5)
  1. LEVOTHYROXINE SODIUM [Concomitant]
  2. CALCIUM [Concomitant]
  3. HYDREA [Suspect]
     Indication: PLATELET COUNT DECREASED
  4. METOPROLOL TARTRATE [Concomitant]
  5. SIMVASTATIN [Concomitant]

REACTIONS (5)
  - MULTI-ORGAN FAILURE [None]
  - CARDIAC DISORDER [None]
  - PNEUMONIA [None]
  - SKIN HYPERPIGMENTATION [None]
  - NAIL DISCOLOURATION [None]
